FAERS Safety Report 19857203 (Version 1)
Quarter: 2021Q3

REPORT INFORMATION
  Report Type: Spontaneous
  Country: GB (occurrence: GB)
  Receive Date: 20210920
  Receipt Date: 20210920
  Transmission Date: 20211014
  Serious: Yes (Life-Threatening, Hospitalization, Other)
  Sender: FDA-Public Use
  Company Number: GB-TEVA-2021-GB-1954352

PATIENT
  Age: 62 Year
  Sex: Female
  Weight: 56 kg

DRUGS (13)
  1. OMEPRAZOLE. [Suspect]
     Active Substance: OMEPRAZOLE
     Route: 065
  2. AMLODIPINE [Concomitant]
     Active Substance: AMLODIPINE BESYLATE
     Dosage: 1 DOSAGE FORMS DAILY;
     Dates: start: 20210729
  3. CODEINE [Concomitant]
     Active Substance: CODEINE
     Dosage: 1 TO 2 WHEN REQUIRED.
     Dates: start: 20210729, end: 20210831
  4. EZETIMIBE. [Concomitant]
     Active Substance: EZETIMIBE
     Dosage: 1 DOSAGE FORMS DAILY;
     Dates: start: 20210729
  5. PERINDOPRIL ERBUMINE. [Concomitant]
     Active Substance: PERINDOPRIL ERBUMINE
     Dosage: 1 DOSAGE FORMS DAILY; NOTES FOR PATIENT: PLEASE BOOK MEDICATION REVIEW
     Dates: start: 20210831
  6. AMLODIPINE [Concomitant]
     Active Substance: AMLODIPINE BESYLATE
     Dosage: 1 DOSAGE FORMS DAILY;
     Dates: start: 20210831
  7. AMLODIPINE [Concomitant]
     Active Substance: AMLODIPINE BESYLATE
     Dosage: 1 DOSAGE FORMS DAILY;
     Dates: start: 20210729, end: 20210831
  8. EZETIMIBE. [Concomitant]
     Active Substance: EZETIMIBE
     Dosage: 1 DOSAGE FORMS DAILY;
     Dates: start: 20210831
  9. PERINDOPRIL ERBUMINE. [Concomitant]
     Active Substance: PERINDOPRIL ERBUMINE
     Dosage: 1 DOSAGE FORMS DAILY; NOTES FOR PATIENT: PLEASE BOOK MEDICATION REVIEW
     Dates: start: 20210729
  10. PERINDOPRIL ERBUMINE. [Concomitant]
     Active Substance: PERINDOPRIL ERBUMINE
     Dosage: 1 DOSAGE FORMS DAILY; NOTES FOR PATIENT: PLEASE BOOK MEDICATION REVIEW
     Dates: start: 20210729, end: 20210831
  11. CODEINE [Concomitant]
     Active Substance: CODEINE
     Dosage: 1 TO 2  WHEN REQUIRED.
     Dates: start: 20210729
  12. EZETIMIBE. [Concomitant]
     Active Substance: EZETIMIBE
     Dosage: 1 DOSAGE FORMS DAILY;
     Dates: start: 20210729, end: 20210831
  13. CODEINE [Concomitant]
     Active Substance: CODEINE
     Dosage: 1 TO 2  WHEN REQUIRED.
     Dates: start: 20210831

REACTIONS (1)
  - Hypocalcaemia [Recovering/Resolving]

NARRATIVE: CASE EVENT DATE: 20210830
